FAERS Safety Report 11789924 (Version 1)
Quarter: 2015Q4

REPORT INFORMATION
  Report Type: Spontaneous
  Country: MX (occurrence: MX)
  Receive Date: 20151201
  Receipt Date: 20151201
  Transmission Date: 20160305
  Serious: Yes (Death, Hospitalization, Other)
  Sender: FDA-Public Use
  Company Number: MX-AMGEN-MEXSP2015126639

PATIENT
  Age: 63 Year
  Sex: Male

DRUGS (2)
  1. NEULASTIM [Suspect]
     Active Substance: PEGFILGRASTIM
     Indication: PROPHYLAXIS
     Dosage: 6 MG, 1 IN 1 D
     Route: 058
     Dates: start: 20150925, end: 20150925
  2. CABAZITAXEL [Suspect]
     Active Substance: CABAZITAXEL
     Indication: PROSTATE CANCER
     Dosage: 45 MG, 1 IN 1 D
     Route: 042
     Dates: start: 20150925, end: 20150925

REACTIONS (6)
  - Diarrhoea [Unknown]
  - Dehydration [Unknown]
  - Drug ineffective [Unknown]
  - Neutropenia [Fatal]
  - Haemorrhage [Unknown]
  - Sepsis [Unknown]

NARRATIVE: CASE EVENT DATE: 20150830
